FAERS Safety Report 23195591 (Version 6)
Quarter: 2025Q2

REPORT INFORMATION
  Report Type: Report from Study
  Country: CA (occurrence: CA)
  Receive Date: 20231117
  Receipt Date: 20250406
  Transmission Date: 20250717
  Serious: Yes (Other)
  Sender: TAKEDA
  Company Number: CA-TAKEDA-2020TUS039078

PATIENT
  Age: 72 Year
  Sex: Female
  Weight: 91 kg

DRUGS (16)
  1. VEDOLIZUMAB [Suspect]
     Active Substance: VEDOLIZUMAB
     Indication: Crohn^s disease
  2. VEDOLIZUMAB [Suspect]
     Active Substance: VEDOLIZUMAB
     Dosage: 300 MILLIGRAM, Q4WEEKS
     Dates: start: 20200915
  3. VEDOLIZUMAB [Suspect]
     Active Substance: VEDOLIZUMAB
     Dosage: 300 MILLIGRAM, Q4WEEKS
  4. VEDOLIZUMAB [Suspect]
     Active Substance: VEDOLIZUMAB
     Dosage: 300 MILLIGRAM, Q4WEEKS
  5. VEDOLIZUMAB [Suspect]
     Active Substance: VEDOLIZUMAB
  6. VEDOLIZUMAB [Suspect]
     Active Substance: VEDOLIZUMAB
  7. VEDOLIZUMAB [Suspect]
     Active Substance: VEDOLIZUMAB
  8. BUDESONIDE [Concomitant]
     Active Substance: BUDESONIDE
  9. PREDNISONE [Concomitant]
     Active Substance: PREDNISONE
  10. COLESTID [Concomitant]
     Active Substance: COLESTIPOL HYDROCHLORIDE
     Indication: Crohn^s disease
     Dosage: 1 GRAM, BID
  11. FLEXERIL [Concomitant]
     Active Substance: CYCLOBENZAPRINE HYDROCHLORIDE
  12. COLESEVELAM HYDROCHLORIDE [Concomitant]
     Active Substance: COLESEVELAM HYDROCHLORIDE
     Dosage: 625 MICROGRAM, TID
     Dates: start: 20231116
  13. IBUPROFEN [Concomitant]
     Active Substance: IBUPROFEN
  14. PERINDOPRIL [Concomitant]
     Active Substance: PERINDOPRIL
  15. Clotrizole [Concomitant]
     Route: 061
  16. BETAMETHASONE [Concomitant]
     Active Substance: BETAMETHASONE
     Route: 061

REACTIONS (11)
  - Gastrointestinal sounds abnormal [Not Recovered/Not Resolved]
  - Fall [Not Recovered/Not Resolved]
  - Intestinal obstruction [Recovered/Resolved]
  - Abdominal pain [Not Recovered/Not Resolved]
  - Diarrhoea [Recovered/Resolved]
  - Malaise [Unknown]
  - Off label use [Unknown]
  - Abnormal faeces [Not Recovered/Not Resolved]
  - Defaecation urgency [Not Recovered/Not Resolved]
  - Dysuria [Unknown]
  - Cough [Not Recovered/Not Resolved]

NARRATIVE: CASE EVENT DATE: 20200915
